FAERS Safety Report 8265269-4 (Version None)
Quarter: 2012Q2

REPORT INFORMATION
  Report Type: 
  Country: None (occurrence: None)
  Receive Date: 20120403
  Receipt Date: 20120319
  Transmission Date: 20120825
  Serious: Yes (Other)
  Sender: FDA-Public Use
  Company Number: B0791540A

PATIENT
  Sex: 0

DRUGS (2)
  1. HEPARIN [Concomitant]
  2. MELPHALAN HYDROCHLORIDE [Suspect]
     Indication: RETINOBLASTOMA
     Dosage: INTRAVENOUS
     Route: 042

REACTIONS (5)
  - RETINAL DEPIGMENTATION [None]
  - RETINAL DEGENERATION [None]
  - VITREOUS HAEMORRHAGE [None]
  - EYELID PTOSIS [None]
  - IIIRD NERVE PARALYSIS [None]
